FAERS Safety Report 8267529-X (Version None)
Quarter: 2012Q2

REPORT INFORMATION
  Report Type: 
  Country: None (occurrence: None)
  Receive Date: 20120409
  Receipt Date: 20120329
  Transmission Date: 20120825
  Serious: Yes (Death, Hospitalization)
  Sender: FDA-Public Use
  Company Number: US-ELI_LILLY_AND_COMPANY-US201106005897

PATIENT
  Sex: Male

DRUGS (1)
  1. FORTEO [Suspect]
     Indication: OSTEOPOROSIS
     Dosage: UNK, UNKNOWN
     Route: 065

REACTIONS (6)
  - CARDIAC FAILURE CONGESTIVE [None]
  - HOSPITALISATION [None]
  - PATELLA FRACTURE [None]
  - DEATH [None]
  - ARTHRALGIA [None]
  - JOINT SWELLING [None]
